FAERS Safety Report 7876610-6 (Version None)
Quarter: 2011Q4

REPORT INFORMATION
  Report Type: 
  Country: None (occurrence: None)
  Receive Date: 20111031
  Receipt Date: 20110725
  Transmission Date: 20120403
  Serious: Yes (Death, Other)
  Sender: FDA-Public Use
  Company Number: US-BAYER-200943420NA

PATIENT
  Age: 6 Day
  Sex: Male
  Weight: 2.834 kg

DRUGS (17)
  1. TRASYLOL [Suspect]
     Indication: ATRIAL SEPTAL DEFECT REPAIR
  2. EPINEPHRINE [Concomitant]
     Dosage: UNK
     Dates: start: 20051109
  3. HEPARIN [Concomitant]
     Dosage: 1200 U, UNK
     Dates: start: 20051109
  4. FENTANYL-100 [Concomitant]
     Dosage: UNK
     Dates: start: 20051109
  5. NAFCILLIN [Concomitant]
     Dosage: UNK
     Dates: start: 20051109
  6. ALBUMIN (HUMAN) [Concomitant]
     Dosage: 100 ML, UNK
     Dates: start: 20051109
  7. PLATELETS [Concomitant]
     Dosage: 2 U, UNK
     Route: 042
     Dates: start: 20051109
  8. CRYOPRECIPITATES [Concomitant]
     Dosage: 2 U, UNK
     Route: 042
     Dates: start: 20051109
  9. LASIX [Concomitant]
     Dosage: 10
     Dates: start: 20051109
  10. MILRINONE [Concomitant]
     Dosage: UNK
     Dates: start: 20051109, end: 20051109
  11. PROTAMINE SULFATE [Concomitant]
     Dosage: UNK
     Dates: start: 20051109
  12. DOBUTAMINE HCL [Concomitant]
     Dosage: UNK
     Dates: start: 20051109
  13. MANNITOL [Concomitant]
     Dosage: 6 ML, UNK
     Dates: start: 20051109
  14. RED BLOOD CELLS [Concomitant]
     Dosage: 150 ML, UNK
     Route: 042
     Dates: start: 20051109
  15. FRESH FROZEN PLASMA [Concomitant]
     Dosage: 120 ML, UNK
     Route: 042
     Dates: start: 20051109
  16. TRASYLOL [Suspect]
     Indication: ANOMALOUS PULMONARY VENOUS CONNECTION
     Dosage: PUMP PRIME 33 ML. 36.5, 2.0 THEN 7.6 CC PER HOUR
     Route: 042
     Dates: start: 20051109, end: 20051110
  17. ROCURONIUM BROMIDE [Concomitant]
     Dosage: UNK
     Dates: start: 20051109

REACTIONS (11)
  - DEATH [None]
  - POSTOPERATIVE RENAL FAILURE [None]
  - RENAL FAILURE [None]
  - INJURY [None]
  - DEPRESSION [None]
  - FEAR [None]
  - ANXIETY [None]
  - RENAL FAILURE CHRONIC [None]
  - PAIN [None]
  - ANHEDONIA [None]
  - UNEVALUABLE EVENT [None]
